FAERS Safety Report 4757672-1 (Version None)
Quarter: 2005Q3

REPORT INFORMATION
  Report Type: 
  Country: None (occurrence: None)
  Receive Date: 20050831
  Receipt Date: 20050804
  Transmission Date: 20060218
  Serious: Yes (Death)
  Sender: FDA-Public Use
  Company Number: KR-GLAXOSMITHKLINE-B0389621A

PATIENT
  Age: 71 Year
  Sex: Male

DRUGS (1)
  1. TOPOTECAN [Suspect]
     Indication: SMALL CELL LUNG CANCER RECURRENT
     Dosage: 2.3MGM2 PER DAY
     Route: 042
     Dates: start: 20040729, end: 20040802

REACTIONS (1)
  - RESPIRATORY FAILURE [None]
